FAERS Safety Report 11580244 (Version 1)
Quarter: 2015Q3

REPORT INFORMATION
  Report Type: Spontaneous
  Country: US (occurrence: US)
  Receive Date: 20150916
  Receipt Date: 20150916
  Transmission Date: 20151125
  Serious: No
  Sender: FDA-Public Use
  Company Number: US-ELI_LILLY_AND_COMPANY-US200804006289

PATIENT
  Age: 59 Year
  Sex: Male

DRUGS (5)
  1. CALCIUM [Concomitant]
     Active Substance: CALCIUM
  2. PREVACID [Concomitant]
     Active Substance: LANSOPRAZOLE
  3. FORTEO [Suspect]
     Active Substance: TERIPARATIDE
     Dates: start: 200712
  4. SPIRIVA [Concomitant]
     Active Substance: TIOTROPIUM BROMIDE MONOHYDRATE
  5. AMITRIPTYLINE [Concomitant]
     Active Substance: AMITRIPTYLINE

REACTIONS (2)
  - Hepatic enzyme increased [Unknown]
  - Constipation [Unknown]

NARRATIVE: CASE EVENT DATE: 20080424
